FAERS Safety Report 4747147-8 (Version None)
Quarter: 2005Q3

REPORT INFORMATION
  Report Type: 
  Country: None (occurrence: None)
  Receive Date: 20050815
  Receipt Date: 20040629
  Transmission Date: 20060218
  Serious: Yes (Hospitalization)
  Sender: FDA-Public Use
  Company Number: MEDI-0002076

PATIENT
  Sex: Female
  Weight: 2.7216 kg

DRUGS (7)
  1. SYNAGIS [Suspect]
     Indication: ANTIVIRAL PROPHYLAXIS
     Dosage: 41 MG, 1 IN 30 D, INTRAMUSCULAR
     Route: 030
     Dates: start: 20031120, end: 20031223
  2. SYNAGIS [Suspect]
     Dosage: 1 IN 30 D, INTRAMUSCULAR
     Dates: start: 20031120
  3. SYNAGIS [Suspect]
     Dosage: 49 MG, 1 IN 30 D, INTRAMUSCULAR
     Dates: start: 20040119
  4. SYNAGIS [Suspect]
     Dosage: 60 MG, 1 IN 30 D, INTRAMUSCULAR;  75 MG, 1 IN 30 D, INTRAMUSCULAR
     Dates: start: 20040315, end: 20040315
  5. SYNAGIS [Suspect]
     Dosage: 60 MG, 1 IN 30 D, INTRAMUSCULAR;  75 MG, 1 IN 30 D, INTRAMUSCULAR
     Dates: start: 20040216
  6. TAGAMET [Concomitant]
  7. MYLICON (SIMETICONE) [Concomitant]

REACTIONS (1)
  - BRONCHIOLITIS [None]
